FAERS Safety Report 21665571 (Version 1)
Quarter: 2022Q4

REPORT INFORMATION
  Report Type: Spontaneous
  Country: CN (occurrence: CN)
  Receive Date: 20221201
  Receipt Date: 20221201
  Transmission Date: 20230113
  Serious: Yes (Other)
  Sender: FDA-Public Use
  Company Number: CN-SA-SAC20221130000628

PATIENT
  Age: 57 Year
  Sex: Female

DRUGS (2)
  1. OXALIPLATIN [Suspect]
     Active Substance: OXALIPLATIN
     Indication: Neoplasm malignant
     Dosage: 192 MG, 1X
     Route: 041
     Dates: start: 20221026, end: 20221026
  2. CAPECITABINE [Concomitant]
     Active Substance: CAPECITABINE
     Indication: Neoplasm
     Dosage: 1.5 G, BID
     Route: 048

REACTIONS (1)
  - Neurotoxicity [Unknown]

NARRATIVE: CASE EVENT DATE: 20221028
